FAERS Safety Report 14869680 (Version 1)
Quarter: 2018Q2

REPORT INFORMATION
  Report Type: Spontaneous
  Country: US (occurrence: US)
  Receive Date: 20180509
  Receipt Date: 20180509
  Transmission Date: 20180711
  Serious: No
  Sender: FDA-Public Use
  Company Number: US-MYLANLABS-2018M1025741

PATIENT
  Age: 125 Month
  Sex: Female
  Weight: 21 kg

DRUGS (1)
  1. LAMIVUDINE/NEVIRAPINE/ZIDOVUDINE [Suspect]
     Active Substance: LAMIVUDINE\NEVIRAPINE\ZIDOVUDINE
     Indication: RETROVIRAL INFECTION
     Dosage: 3 DF, BID
     Route: 048

REACTIONS (1)
  - Vomiting [Unknown]
